FAERS Safety Report 15484334 (Version 2)
Quarter: 2018Q4

REPORT INFORMATION
  Report Type: Report from Study
  Country: None (occurrence: US)
  Receive Date: 20181010
  Receipt Date: 20181227
  Transmission Date: 20190205
  Serious: Yes (Hospitalization, Other)
  Sender: FDA-Public Use
  Company Number: US-ABBVIE-18K-163-2509060-00

PATIENT
  Sex: Female

DRUGS (7)
  1. HUMIRA [Suspect]
     Active Substance: ADALIMUMAB
     Dosage: DAY 29
     Route: 058
     Dates: start: 20181213
  2. HUMIRA [Suspect]
     Active Substance: ADALIMUMAB
     Dosage: DAY 15
     Route: 058
     Dates: start: 2012, end: 2012
  3. HUMIRA [Suspect]
     Active Substance: ADALIMUMAB
     Route: 058
     Dates: start: 2012, end: 201410
  4. HUMIRA [Suspect]
     Active Substance: ADALIMUMAB
     Route: 058
     Dates: start: 2014, end: 2014
  5. HUMIRA [Suspect]
     Active Substance: ADALIMUMAB
     Dosage: DAY 15
     Route: 058
     Dates: start: 20181129, end: 20181129
  6. HUMIRA [Suspect]
     Active Substance: ADALIMUMAB
     Indication: CROHN^S DISEASE
     Dosage: DAY 1
     Route: 058
     Dates: start: 20181115, end: 20181115
  7. HUMIRA [Suspect]
     Active Substance: ADALIMUMAB
     Indication: CROHN^S DISEASE
     Dosage: DAY 1
     Route: 058
     Dates: start: 2012, end: 2012

REACTIONS (13)
  - Abnormal faeces [Unknown]
  - Weight increased [Unknown]
  - Defaecation urgency [Unknown]
  - Frequent bowel movements [Not Recovered/Not Resolved]
  - Nasopharyngitis [Unknown]
  - Loss of personal independence in daily activities [Not Recovered/Not Resolved]
  - Intestinal resection [Unknown]
  - Constipation [Not Recovered/Not Resolved]
  - Injection site pain [Not Recovered/Not Resolved]
  - Crohn^s disease [Unknown]
  - Pharyngitis streptococcal [Unknown]
  - Food intolerance [Unknown]
  - Nausea [Recovered/Resolved]

NARRATIVE: CASE EVENT DATE: 2012
